FAERS Safety Report 7606349-3 (Version None)
Quarter: 2011Q3

REPORT INFORMATION
  Report Type: 
  Country: None (occurrence: None)
  Receive Date: 20110705
  Receipt Date: 20110629
  Transmission Date: 20111222
  Serious: Yes (Death)
  Sender: FDA-Public Use
  Company Number: 2011SP030352

PATIENT
  Age: 69 Year
  Sex: Male

DRUGS (3)
  1. WARFARIN SODIUM [Concomitant]
  2. DEXAMETHASONE [Concomitant]
  3. TEMODAR [Suspect]
     Indication: GLIOBLASTOMA

REACTIONS (1)
  - DEATH [None]
